FAERS Safety Report 24366356 (Version 1)
Quarter: 2024Q3

REPORT INFORMATION
  Report Type: Spontaneous
  Country: US (occurrence: US)
  Receive Date: 20240926
  Receipt Date: 20240926
  Transmission Date: 20241017
  Serious: No
  Sender: PFIZER
  Company Number: US-PFIZER INC-PV202400125258

PATIENT
  Age: 56 Year
  Sex: Female

DRUGS (5)
  1. TUKYSA [Interacting]
     Active Substance: TUCATINIB
     Indication: Insomnia
     Dosage: 150MG; 2 TABLETS, TWICE A DAY
  2. ATORVASTATIN [Interacting]
     Active Substance: ATORVASTATIN
     Dosage: UNK
  3. FLUTICASONE [Interacting]
     Active Substance: FLUTICASONE
     Dosage: UNK
  4. TRAMADOL [Interacting]
     Active Substance: TRAMADOL\TRAMADOL HYDROCHLORIDE
     Dosage: UNK
  5. HYDROCODONE [Interacting]
     Active Substance: HYDROCODONE
     Dosage: UNK

REACTIONS (2)
  - Drug interaction [Unknown]
  - Off label use [Unknown]
